FAERS Safety Report 16125017 (Version 3)
Quarter: 2024Q1

REPORT INFORMATION
  Report Type: Spontaneous
  Country: JP (occurrence: JP)
  Receive Date: 20190327
  Receipt Date: 20240105
  Transmission Date: 20240409
  Serious: Yes (Other)
  Sender: FDA-Public Use
  Company Number: JP-LUNDBECK-DKLU2039340

PATIENT
  Age: 2 Year
  Sex: Female
  Weight: 7.5 kg

DRUGS (12)
  1. SABRIL [Suspect]
     Active Substance: VIGABATRIN
     Indication: Infantile spasms
     Dosage: 300 MG, BID
     Route: 048
     Dates: start: 20170710, end: 20181125
  2. SABRIL [Suspect]
     Active Substance: VIGABATRIN
     Dosage: 195 MG, BID
     Route: 048
     Dates: start: 20170607, end: 20170618
  3. SABRIL [Suspect]
     Active Substance: VIGABATRIN
     Dosage: 150 MG, BID
     Route: 048
     Dates: start: 20170619, end: 20170625
  4. SABRIL [Suspect]
     Active Substance: VIGABATRIN
     Dosage: 195 MG, BID
     Route: 048
     Dates: start: 20170626, end: 20170709
  5. SABRIL [Suspect]
     Active Substance: VIGABATRIN
     Dosage: 350 MG, BID
     Route: 048
     Dates: start: 20181126, end: 20190217
  6. SABRIL [Suspect]
     Active Substance: VIGABATRIN
     Dosage: 500 MG, BID
     Route: 048
     Dates: start: 20190218, end: 20191121
  7. SABRIL [Suspect]
     Active Substance: VIGABATRIN
     Dosage: 375 MG, BID
     Route: 048
     Dates: start: 20191122, end: 20191222
  8. SABRIL [Suspect]
     Active Substance: VIGABATRIN
     Dosage: 250 MG, BID
     Route: 048
     Dates: start: 20191223, end: 20200119
  9. SABRIL [Suspect]
     Active Substance: VIGABATRIN
     Dosage: 125 MG, BID
     Route: 048
     Dates: start: 20200120, end: 20200216
  10. TOPIRAMATE [Concomitant]
     Active Substance: TOPIRAMATE
     Indication: Infantile spasms
     Dosage: DAILY DOSE: 80 MG
     Route: 048
     Dates: start: 201511
  11. CLONAZEPAM [Concomitant]
     Active Substance: CLONAZEPAM
     Indication: Infantile spasms
     Dosage: DAILY DOSE: 0.35 MG
     Route: 048
     Dates: start: 201603, end: 20180401
  12. VALPROATE SODIUM [Concomitant]
     Active Substance: VALPROATE SODIUM
     Indication: Infantile spasms
     Dosage: DAILY DOSE: 140 MG
     Route: 048
     Dates: start: 201606

REACTIONS (2)
  - Retinogram abnormal [Recovered/Resolved]
  - Gastrooesophageal reflux disease [Recovering/Resolving]

NARRATIVE: CASE EVENT DATE: 20170919
